FAERS Safety Report 26075183 (Version 2)
Quarter: 2025Q4

REPORT INFORMATION
  Report Type: Report from Study
  Country: CA (occurrence: CA)
  Receive Date: 20251121
  Receipt Date: 20251219
  Transmission Date: 20260118
  Serious: Yes (Hospitalization)
  Sender: OTSUKA
  Company Number: CA-MMM-Otsuka-YQDEJM6A

PATIENT
  Sex: Female

DRUGS (7)
  1. ARIPIPRAZOLE [Suspect]
     Active Substance: ARIPIPRAZOLE
     Indication: Product used for unknown indication
     Dosage: 300 MG EVERY 4 WEEKS (EVERY 28 DAYS)
  2. AMOXICILLIN\CLAVULANATE POTASSIUM [Concomitant]
     Active Substance: AMOXICILLIN\CLAVULANATE POTASSIUM
     Indication: Product used for unknown indication
     Dosage: 1 DF, BID (875-125 MG) (EVERY 12 HOURS) (FOR 76 DOSES)
     Route: 061
  3. CRESTOR [Concomitant]
     Active Substance: ROSUVASTATIN CALCIUM
     Indication: Product used for unknown indication
     Dosage: 1 DF, QD (ONE TIME EACH DAY) (FOR 60 DAYS)
     Route: 061
  4. TYLENOL EXTRA STRENGTH [Concomitant]
     Active Substance: ACETAMINOPHEN
     Indication: Pain
     Dosage: 2 DF, QD, (1,000 MG, ONE TIME EACH DAY) (IF NEEDED FOR MILD PAIN)
     Route: 061
  5. ASPIRIN [Concomitant]
     Active Substance: ASPIRIN
     Indication: Product used for unknown indication
     Dosage: 1 DF, QD (ONE TABLET, ONE TIME EACH DAY IN THE MORNING)
     Route: 061
  6. REiviEROi\i RD [Concomitant]
     Indication: Product used for unknown indication
     Dosage: 1 DF, QD (ONE TABLET, EVERY NIGHT)
     Route: 061
  7. SEROQUEL [Concomitant]
     Active Substance: QUETIAPINE FUMARATE
     Indication: Product used for unknown indication
     Dosage: 1 DF, QD (ONE TABLET, EVERY NIGHT)
     Route: 061

REACTIONS (19)
  - Skin ulcer [Unknown]
  - Osteomyelitis [Unknown]
  - Cellulitis [Unknown]
  - Sinus tachycardia [Unknown]
  - Epistaxis [Recovered/Resolved]
  - Oedema peripheral [Recovered/Resolved]
  - Blood calcium decreased [Unknown]
  - Haemoptysis [Unknown]
  - Blood albumin decreased [Unknown]
  - Haematocrit decreased [Unknown]
  - Disorientation [Unknown]
  - Confusional state [Unknown]
  - Blood creatinine increased [Unknown]
  - Pain in extremity [Unknown]
  - Cough [Unknown]
  - Oedema peripheral [Unknown]
  - Vomiting [Unknown]
  - Somnolence [Unknown]
  - Product dose omission issue [Unknown]

NARRATIVE: CASE EVENT DATE: 20250101
